FAERS Safety Report 9283837 (Version 2)
Quarter: 2013Q2

REPORT INFORMATION
  Report Type: Report from Study
  Country: CA (occurrence: CA)
  Receive Date: 20130510
  Receipt Date: 20130613
  Transmission Date: 20140414
  Serious: Yes (Hospitalization, Other)
  Sender: FDA-Public Use
  Company Number: CA-GLAXOSMITHKLINE-A1022374A

PATIENT
  Age: 68 Year
  Sex: Male
  Weight: 84.6 kg

DRUGS (9)
  1. GSK2110183 [Suspect]
     Indication: CHRONIC LYMPHOCYTIC LEUKAEMIA
     Dosage: 125MG PER DAY
     Route: 048
     Dates: start: 20121208
  2. OFATUMUMAB [Suspect]
     Indication: CHRONIC LYMPHOCYTIC LEUKAEMIA
     Dosage: 2000MG CYCLIC
     Route: 042
     Dates: start: 20121218
  3. VITAMIN D [Concomitant]
     Indication: SUPPLEMENTATION THERAPY
     Dosage: 4TAB PER DAY
     Route: 048
     Dates: start: 201111
  4. CALCIUM [Concomitant]
     Indication: SUPPLEMENTATION THERAPY
     Dosage: 3TAB PER DAY
     Route: 048
     Dates: start: 201111
  5. ALFALFA [Concomitant]
     Indication: SUPPLEMENTATION THERAPY
     Dosage: 500MG PER DAY
     Route: 048
     Dates: start: 201111
  6. LOSEC [Concomitant]
     Indication: PROPHYLAXIS
     Dosage: 20MG PER DAY
     Route: 048
     Dates: start: 20121206
  7. ALLOPURINOL [Concomitant]
     Indication: PROPHYLAXIS
     Dosage: 300MG PER DAY
     Route: 048
     Dates: start: 20121205
  8. IMOVANE [Concomitant]
     Indication: INSOMNIA
     Dosage: 7.5MG AT NIGHT
     Route: 048
     Dates: start: 20121217
  9. DEXAMETHASONE [Concomitant]
     Indication: PROPHYLAXIS
     Dosage: 8MG PER DAY
     Route: 048
     Dates: start: 20130107

REACTIONS (2)
  - Interstitial lung disease [Recovered/Resolved with Sequelae]
  - Hypoxia [Recovered/Resolved]
